FAERS Safety Report 7802295-0 (Version None)
Quarter: 2011Q4

REPORT INFORMATION
  Report Type: 
  Country: None (occurrence: None)
  Receive Date: 20111007
  Receipt Date: 20110927
  Transmission Date: 20120403
  Serious: Yes (Death, Other)
  Sender: FDA-Public Use
  Company Number: US-PFIZER INC-2011117222

PATIENT
  Sex: Male

DRUGS (2)
  1. CHANTIX [Suspect]
     Indication: SMOKING CESSATION THERAPY
     Dosage: 0.5MG/1MG
     Dates: start: 20090201, end: 20090301
  2. CHANTIX [Suspect]
     Dosage: 0.5MG/1MG
     Dates: start: 20090401, end: 20090501

REACTIONS (7)
  - ANXIETY [None]
  - COMPLETED SUICIDE [None]
  - DEPRESSION [None]
  - AGGRESSION [None]
  - IRRITABILITY [None]
  - ABNORMAL BEHAVIOUR [None]
  - MOOD SWINGS [None]
